FAERS Safety Report 24952983 (Version 7)
Quarter: 2025Q2

REPORT INFORMATION
  Report Type: Report from Study
  Country: FR (occurrence: FR)
  Receive Date: 20250211
  Receipt Date: 20250419
  Transmission Date: 20250717
  Serious: Yes (Death, Life-Threatening, Hospitalization)
  Sender: CELLTRION
  Company Number: FR-CELLTRION INC.-2025FR003886

PATIENT

DRUGS (18)
  1. INFLIXIMAB-DYYB [Suspect]
     Active Substance: INFLIXIMAB-DYYB
     Indication: Ankylosing spondylitis
     Route: 042
     Dates: start: 20230126
  2. INFLIXIMAB-DYYB [Suspect]
     Active Substance: INFLIXIMAB-DYYB
     Route: 042
     Dates: start: 20230323
  3. INFLIXIMAB-DYYB [Suspect]
     Active Substance: INFLIXIMAB-DYYB
     Route: 042
     Dates: start: 20230517
  4. INFLIXIMAB-DYYB [Suspect]
     Active Substance: INFLIXIMAB-DYYB
     Route: 042
     Dates: start: 20230710
  5. INFLIXIMAB-DYYB [Suspect]
     Active Substance: INFLIXIMAB-DYYB
     Route: 042
     Dates: start: 20230904
  6. INFLIXIMAB-DYYB [Suspect]
     Active Substance: INFLIXIMAB-DYYB
     Route: 042
     Dates: start: 20231031
  7. INFLIXIMAB-DYYB [Suspect]
     Active Substance: INFLIXIMAB-DYYB
     Route: 042
     Dates: start: 20231219
  8. INFLIXIMAB-DYYB [Suspect]
     Active Substance: INFLIXIMAB-DYYB
     Route: 042
     Dates: start: 20240213
  9. INFLIXIMAB-DYYB [Suspect]
     Active Substance: INFLIXIMAB-DYYB
     Route: 042
     Dates: start: 20240409
  10. INFLIXIMAB-DYYB [Suspect]
     Active Substance: INFLIXIMAB-DYYB
     Route: 042
     Dates: start: 20240604
  11. FOLIC ACID [Concomitant]
     Active Substance: FOLIC ACID
     Indication: Ankylosing spondylitis
     Dosage: 10 MG ONCE PER WEEK
     Route: 048
     Dates: start: 2007
  12. ACETAMINOPHEN\CODEINE PHOSPHATE [Concomitant]
     Active Substance: ACETAMINOPHEN\CODEINE PHOSPHATE
     Indication: Ankylosing spondylitis
     Route: 048
  13. ATORVASTATIN [Concomitant]
     Active Substance: ATORVASTATIN
     Indication: Hypercholesterolaemia
     Route: 048
     Dates: start: 2010
  14. HYDREA [Concomitant]
     Active Substance: HYDROXYUREA
     Indication: Thrombocytosis
     Route: 048
  15. NOVATREX (METHOTREXATE) [Concomitant]
     Active Substance: METHOTREXATE SODIUM
     Indication: Ankylosing spondylitis
     Dosage: 12.5 MG, ONCE PER WEEK
     Route: 048
     Dates: start: 20230323
  16. NEURONTIN [Concomitant]
     Active Substance: GABAPENTIN
     Indication: Axonal neuropathy
     Route: 048
     Dates: start: 20230323
  17. ASPIRIN [Concomitant]
     Active Substance: ASPIRIN
     Indication: Arrhythmia
     Route: 048
     Dates: start: 20230323
  18. DICLOFENAC SODIUM [Concomitant]
     Active Substance: DICLOFENAC SODIUM
     Indication: Ankylosing spondylitis
     Route: 061
     Dates: start: 20230323

REACTIONS (2)
  - Pneumonia [Fatal]
  - Acute myeloid leukaemia [Not Recovered/Not Resolved]

NARRATIVE: CASE EVENT DATE: 20240729
